FAERS Safety Report 7623354-1 (Version None)
Quarter: 2011Q3

REPORT INFORMATION
  Report Type: 
  Country: None (occurrence: None)
  Receive Date: 20110720
  Receipt Date: 20110705
  Transmission Date: 20111222
  Serious: Yes (Other)
  Sender: FDA-Public Use
  Company Number: AR-SANOFI-AVENTIS-2011SA044335

PATIENT
  Age: 76 Year
  Sex: Male
  Weight: 70 kg

DRUGS (9)
  1. ASPIRIN [Concomitant]
  2. FUROSEMIDE [Concomitant]
  3. LOPERAMIDE [Concomitant]
     Dates: start: 20110408
  4. CARVEDILOL [Concomitant]
  5. DIGOXIN [Concomitant]
  6. ACENOCOUMAROL [Concomitant]
  7. NSAID'S [Concomitant]
  8. DRONEDARONE HCL [Suspect]
     Indication: ATRIAL FIBRILLATION
     Route: 048
     Dates: start: 20110330
  9. ENALAPRIL MALEATE [Concomitant]

REACTIONS (1)
  - CARDIAC FAILURE [None]
